FAERS Safety Report 5657600-0 (Version None)
Quarter: 2008Q1

REPORT INFORMATION
  Report Type: 
  Country: None (occurrence: None)
  Receive Date: 20080219
  Receipt Date: 20071126
  Transmission Date: 20080703
  Serious: No
  Sender: FDA-Public Use
  Company Number: WAES 0711USA04809

PATIENT
  Age: 72 Year
  Sex: Male

DRUGS (11)
  1. JANUVIA [Suspect]
     Indication: TYPE 2 DIABETES MELLITUS
     Dosage: 100 MG/DAILY/PO
     Route: 048
     Dates: start: 20070501
  2. ACTONEL [Concomitant]
  3. ACTOS [Concomitant]
  4. CLINORIL [Concomitant]
  5. LIPITOR [Concomitant]
  6. NEXIUM [Concomitant]
  7. PLAVIX [Concomitant]
  8. PROSCAR [Concomitant]
  9. SYNTHROID [Concomitant]
  10. GLIPIZIDE [Concomitant]
  11. TERAZOSIN HYDROCHLORIDE [Concomitant]

REACTIONS (1)
  - FLUID RETENTION [None]
